FAERS Safety Report 4401370-0 (Version None)
Quarter: 2004Q3

REPORT INFORMATION
  Report Type: 
  Country: None (occurrence: None)
  Receive Date: 20040907
  Receipt Date: 20040330
  Transmission Date: 20050211
  Serious: No
  Sender: FDA-Public Use
  Company Number: US-BRISTOL-MYERS SQUIBB COMPANY-12545430

PATIENT
  Age: 87 Year
  Sex: Male
  Weight: 63 kg

DRUGS (4)
  1. COUMADIN [Suspect]
     Indication: ATRIAL FIBRILLATION
     Dosage: STARTED 9/03:5MG 4 X'S WEEK; 2.5MG 3 X'S WEEK; LAST DOSE GIVEN 29-MAR-2004.
     Route: 048
     Dates: start: 20030901
  2. LANOXIN [Concomitant]
     Dosage: FOR SEVERAL YEARS
  3. DIOVAN [Concomitant]
     Dosage: FOR SEVERAL YEARS
  4. LASIX [Concomitant]
     Dosage: FOR SEVERAL YEARS

REACTIONS (1)
  - PROTHROMBIN TIME PROLONGED [None]
